FAERS Safety Report 5155280-4 (Version None)
Quarter: 2006Q4

REPORT INFORMATION
  Report Type: 
  Country: None (occurrence: None)
  Receive Date: 20061121
  Receipt Date: 20061108
  Transmission Date: 20070319
  Serious: Yes (Hospitalization, Other)
  Sender: FDA-Public Use
  Company Number: PHBS2006JP17458

PATIENT
  Age: 34 Year
  Sex: Female

DRUGS (10)
  1. PREDNISOLONE [Concomitant]
     Dosage: 10 MG/DAY
     Route: 048
     Dates: start: 20040601
  2. METHOTREXATE [Concomitant]
     Dosage: SHORT-COURSE
  3. BUSULFAN [Concomitant]
     Dosage: 4 MG/KG, QD
  4. CYCLOPHOSPHAMIDE [Concomitant]
     Dosage: 60 MG/KG, QD
  5. METHYLPREDNISOLONE [Concomitant]
     Dosage: 1 G, QD
     Route: 042
     Dates: start: 20040601, end: 20040601
  6. CYCLOSPORINE [Suspect]
     Indication: BONE MARROW TRANSPLANT
     Dosage: 250 MG/DAY
     Route: 048
     Dates: start: 20030301, end: 20030901
  7. CYCLOSPORINE [Suspect]
     Dosage: 200 MG/DAY
     Route: 048
     Dates: start: 20030901, end: 20030901
  8. CYCLOSPORINE [Suspect]
     Dosage: 100 MG/DAY
     Route: 048
     Dates: start: 20030901, end: 20040301
  9. CYCLOSPORINE [Suspect]
     Dosage: 80 MG/DAY
     Route: 048
     Dates: start: 20040301, end: 20040101
  10. CYCLOSPORINE [Suspect]
     Dosage: 20 MG/DAY
     Route: 048
     Dates: start: 20040101

REACTIONS (20)
  - ACUTE SINUSITIS [None]
  - BONE SCAN ABNORMAL [None]
  - CENTRAL NERVOUS SYSTEM INFLAMMATION [None]
  - GASTROENTERITIS [None]
  - GRAFT VERSUS HOST DISEASE [None]
  - HYPOAESTHESIA [None]
  - LHERMITTE'S SIGN [None]
  - MUSCULOSKELETAL STIFFNESS [None]
  - MYELOPATHY [None]
  - PAIN IN EXTREMITY [None]
  - PANCYTOPENIA [None]
  - PARAESTHESIA [None]
  - PNEUMONIA [None]
  - PRURITUS [None]
  - RADICULAR PAIN [None]
  - SENSORY DISTURBANCE [None]
  - SENSORY LOSS [None]
  - SOMATOSENSORY EVOKED POTENTIALS ABNORMAL [None]
  - SPINAL CORD DISORDER [None]
  - THROMBOPHLEBITIS [None]
